FAERS Safety Report 10067476 (Version 2)
Quarter: 2014Q2

REPORT INFORMATION
  Report Type: Spontaneous
  Country: GB (occurrence: None)
  Receive Date: 20140407
  Receipt Date: 20140516
  Transmission Date: 20141212
  Serious: Yes (Hospitalization)
  Sender: FDA-Public Use
  Company Number: SYM-2014-19039

PATIENT
  Age: 57 Year
  Sex: Female

DRUGS (14)
  1. ACYCLOVIR (ACICLOVIR) (ACICLOVIR) [Suspect]
     Indication: ENCEPHALITIS
     Dates: start: 20140220, end: 20140224
  2. CEFTRIAXONE (CEFTRIAXONE) [Suspect]
     Indication: ENCEPHALITIS
     Route: 042
     Dates: start: 20140220
  3. PARACETAMOL (PARACETAMOL) [Suspect]
     Indication: ENCEPHALITIS
  4. FRAGMIN (DALTEPARIN SODIUM) (DALTEPARIN SODIUM) [Concomitant]
  5. SANDO K (POTASSIUM CHLORIDE) (POTASSIUM CHLORIDE) [Concomitant]
  6. NIMOTOP (NIMODIPINE) [Concomitant]
  7. PABRINEX (PARENTROVITE) (ASCORBIC ACID, PYIDOXINE HYDROCHLORIDE, THIAMINE HYDROCHLORIDE, RIBOFLAVIN,NICTOINAMIDE) [Concomitant]
  8. LORAZEPAM (LORAZEPAM) [Concomitant]
  9. CHLORDIAZEPOXIDE (CHLORIAZEPOXIDE) [Concomitant]
  10. HALOPERIDOL (HALOPERIDOL) [Concomitant]
  11. OMEPRAZOLE (OMEPRAZOLE) [Concomitant]
  12. LEVETIRACETAM (LEVETIRACETAM) [Concomitant]
  13. ASPIRIN (ACETYLSALICYLIC ACID) (ACETYLSALICYLIC ACID) [Concomitant]
  14. LAMOTRIGINE (LAMOTRIGINE) [Concomitant]

REACTIONS (1)
  - Alanine aminotransferase increased [None]
